FAERS Safety Report 18749141 (Version 2)
Quarter: 2021Q1

REPORT INFORMATION
  Report Type: Report from Study
  Country: US (occurrence: US)
  Receive Date: 20210116
  Receipt Date: 20210224
  Transmission Date: 20210419
  Serious: No
  Sender: FDA-Public Use
  Company Number: NVSC2021US005585

PATIENT
  Age: 61 Year
  Sex: Female
  Weight: 76.11 kg

DRUGS (2)
  1. COSENTYX [Suspect]
     Active Substance: SECUKINUMAB
     Indication: PSORIASIS
     Dosage: 300 MG,QW
     Route: 058
  2. COSENTYX [Suspect]
     Active Substance: SECUKINUMAB
     Dosage: UNK (EVERY 28 DAYS)
     Route: 058
     Dates: start: 20201225

REACTIONS (5)
  - Back pain [Recovering/Resolving]
  - Abdominal discomfort [Recovered/Resolved]
  - Headache [Recovering/Resolving]
  - Illness [Recovering/Resolving]
  - Feeling abnormal [Recovering/Resolving]

NARRATIVE: CASE EVENT DATE: 20201225
